FAERS Safety Report 4749579-0 (Version None)
Quarter: 2005Q3

REPORT INFORMATION
  Report Type: 
  Country: None (occurrence: None)
  Receive Date: 20050822
  Receipt Date: 20050621
  Transmission Date: 20060218
  Serious: Yes (Other)
  Sender: FDA-Public Use
  Company Number: NO-GLAXOSMITHKLINE-B0385770A

PATIENT
  Age: 42 Year
  Sex: Female

DRUGS (2)
  1. VALTREX [Suspect]
     Indication: PROPHYLAXIS
     Route: 048
     Dates: start: 20050406, end: 20050416
  2. DICLOCIL [Suspect]
     Indication: ANTIBIOTIC LEVEL
     Route: 048
     Dates: start: 20050406, end: 20050416

REACTIONS (3)
  - ABDOMINAL PAIN [None]
  - CLOSTRIDIUM COLITIS [None]
  - DIARRHOEA HAEMORRHAGIC [None]
